FAERS Safety Report 18124481 (Version 1)
Quarter: 2020Q3

REPORT INFORMATION
  Report Type: Spontaneous
  Country: US (occurrence: US)
  Receive Date: 20200807
  Receipt Date: 20200807
  Transmission Date: 20201103
  Serious: No
  Sender: FDA-Public Use
  Company Number: US-PFIZER INC-2020298903

PATIENT
  Age: 37 Year
  Sex: Female

DRUGS (1)
  1. EFFEXOR [Suspect]
     Active Substance: VENLAFAXINE HYDROCHLORIDE
     Indication: POST-TRAUMATIC STRESS DISORDER
     Dosage: 300 MG, 1X/DAY(150MG TWO CAPSULES ONCE A DAY BY MOUTH)
     Route: 048
     Dates: start: 200208

REACTIONS (9)
  - Off label use [Unknown]
  - Feeling abnormal [Recovered/Resolved]
  - Discomfort [Recovered/Resolved]
  - Headache [Recovered/Resolved]
  - Drug withdrawal syndrome [Recovered/Resolved]
  - Product use in unapproved indication [Unknown]
  - Claustrophobia [Recovered/Resolved]
  - Prescribed overdose [Unknown]
  - Balance disorder [Recovered/Resolved]

NARRATIVE: CASE EVENT DATE: 200208
